FAERS Safety Report 18980554 (Version 2)
Quarter: 2021Q1

REPORT INFORMATION
  Report Type: Spontaneous
  Country: US (occurrence: US)
  Receive Date: 20210308
  Receipt Date: 20210322
  Transmission Date: 20210420
  Serious: Yes (Hospitalization, Other)
  Sender: FDA-Public Use
  Company Number: US-VERTEX PHARMACEUTICALS-2020-023982

PATIENT
  Age: 61 Year
  Sex: Male

DRUGS (13)
  1. MYCOPHENOLATE [Concomitant]
     Active Substance: MYCOPHENOLIC ACID
  2. SUMATRIPTAN. [Concomitant]
     Active Substance: SUMATRIPTAN
  3. CEFPODOXIME [Concomitant]
     Active Substance: CEFPODOXIME
  4. MAG OXIDE [Concomitant]
     Active Substance: MAGNESIUM OXIDE
  5. VITAMIN D [COLECALCIFEROL] [Concomitant]
     Active Substance: CHOLECALCIFEROL
  6. VITAMIN B [Concomitant]
     Active Substance: VITAMIN B
  7. HUMALOG [Concomitant]
     Active Substance: INSULIN LISPRO
  8. TRIKAFTA [Suspect]
     Active Substance: ELEXACAFTOR\IVACAFTOR\TEZACAFTOR
     Dosage: 2 ORANGE TABS AM ALTERNATING WITH 1 BLUE PILL IN NEXT AM (NO EVENING DOSE)
     Route: 048
     Dates: start: 20201030
  9. DIFLUCAN [Concomitant]
     Active Substance: FLUCONAZOLE
     Dosage: UNK
  10. TACROLIMUS. [Concomitant]
     Active Substance: TACROLIMUS
  11. TRIKAFTA [Suspect]
     Active Substance: ELEXACAFTOR\IVACAFTOR\TEZACAFTOR
     Indication: CYSTIC FIBROSIS
     Dosage: 2 TABS (100MG ELEXA/50MG TEZA/ 75MG IVA) QAM ; 1 TAB (150MG IVA) QPM
     Route: 048
     Dates: start: 20200509, end: 2020
  12. LANTUS [Concomitant]
     Active Substance: INSULIN GLARGINE
  13. ESGIC [Concomitant]
     Active Substance: ACETAMINOPHEN\BUTALBITAL\CAFFEINE

REACTIONS (5)
  - Sepsis [Not Recovered/Not Resolved]
  - Gastrointestinal procedural complication [Not Recovered/Not Resolved]
  - Liver transplant [Recovering/Resolving]
  - Transplant rejection [Unknown]
  - Renal transplant [Recovering/Resolving]

NARRATIVE: CASE EVENT DATE: 2020
